FAERS Safety Report 7079398-4 (Version None)
Quarter: 2010Q4

REPORT INFORMATION
  Report Type: 
  Country: None (occurrence: None)
  Receive Date: 20101022
  Receipt Date: 20101007
  Transmission Date: 20110411
  Serious: Yes (Hospitalization)
  Sender: FDA-Public Use
  Company Number: 2010S1000869

PATIENT
  Age: 57 Year
  Sex: Female
  Weight: 67.6 kg

DRUGS (7)
  1. SK-0403 (SK-0403) [Suspect]
     Indication: TYPE 2 DIABETES MELLITUS
     Dosage: (BID; PO) (100 MG; BID; PO) (200 MG; BID; PO)
     Route: 048
     Dates: start: 20091029, end: 20100121
  2. SK-0403 (SK-0403) [Suspect]
     Indication: TYPE 2 DIABETES MELLITUS
     Dosage: (BID; PO) (100 MG; BID; PO) (200 MG; BID; PO)
     Route: 048
     Dates: start: 20100121, end: 20100520
  3. SK-0403 (SK-0403) [Suspect]
     Indication: TYPE 2 DIABETES MELLITUS
     Dosage: (BID; PO) (100 MG; BID; PO) (200 MG; BID; PO)
     Route: 048
     Dates: start: 20100520, end: 20100906
  4. LIVALO [Suspect]
     Indication: HYPERLIPIDAEMIA
     Dosage: 2 MG; 1X; PO
     Route: 048
  5. MIGLITOL [Concomitant]
  6. NORVASC [Concomitant]
  7. INFLUENZA HA VACCINE [Concomitant]

REACTIONS (1)
  - METRORRHAGIA [None]
